FAERS Safety Report 10722974 (Version 3)
Quarter: 2015Q1

REPORT INFORMATION
  Report Type: Report from Study
  Country: GB (occurrence: None)
  Receive Date: 20150114
  Receipt Date: 20150220
  Transmission Date: 20150721
  Serious: Yes (Life-Threatening, Hospitalization)
  Sender: FDA-Public Use
  Company Number: 2014MPI01756

PATIENT
  Age: 42 Year
  Sex: Male
  Weight: 107 kg

DRUGS (4)
  1. BRENTUXIMAB VEDOTIN [Suspect]
     Active Substance: BRENTUXIMAB VEDOTIN
     Indication: HODGKIN^S DISEASE
     Dosage: 120 MG, UNK, INTRAVENOUS
     Route: 042
     Dates: start: 20141114, end: 20141219
  2. DACARBAZINE (DACARBAZINE) INJECTION [Suspect]
     Active Substance: DACARBAZINE
     Indication: HODGKIN^S DISEASE
     Dosage: 845 MG, UNK, INTRAVENOUS
     Route: 042
     Dates: start: 20141114, end: 20141219
  3. DOXORUBICIN (DOXORUBICIN) INJECTION [Suspect]
     Active Substance: DOXORUBICIN
     Indication: HODGKIN^S DISEASE
     Dosage: 56 MG, UNK, INTRAVENOUS
     Route: 042
     Dates: start: 20141114, end: 20141219
  4. VINBLASTINE [Suspect]
     Active Substance: VINBLASTINE
     Indication: HODGKIN^S DISEASE
     Dosage: 13.5 MG, UNK, INTRAVENOUS
     Route: 042
     Dates: start: 20141114, end: 20141219

REACTIONS (11)
  - Respiratory failure [None]
  - Abdominal pain [None]
  - Neutropenic colitis [None]
  - Cough [None]
  - Feeling cold [None]
  - Chills [None]
  - Clostridium test positive [None]
  - Neutropenic sepsis [None]
  - Escherichia test positive [None]
  - Acute kidney injury [None]
  - Dyspnoea [None]

NARRATIVE: CASE EVENT DATE: 20141226
